FAERS Safety Report 9839233 (Version 2)
Quarter: 2014Q3

REPORT INFORMATION
  Report Type: Spontaneous
  Country: US (occurrence: US)
  Receive Date: 20140123
  Receipt Date: 20140724
  Transmission Date: 20150326
  Serious: Yes (Hospitalization, Other)
  Sender: FDA-Public Use
  Company Number: US-009507513-1401USA010758

PATIENT
  Sex: Female

DRUGS (1)
  1. NUVARING [Suspect]
     Active Substance: ETHINYL ESTRADIOL\ETONOGESTREL
     Dosage: UNK
     Route: 067

REACTIONS (10)
  - Pulmonary embolism [Unknown]
  - Nausea [Recovered/Resolved]
  - Pulmonary infarction [Unknown]
  - Cough [Unknown]
  - Accident at work [Not Recovered/Not Resolved]
  - Pulmonary mass [Unknown]
  - Diastolic hypertension [Unknown]
  - Feeling jittery [Unknown]
  - Pulmonary hypertension [Unknown]
  - Neck pain [Not Recovered/Not Resolved]

NARRATIVE: CASE EVENT DATE: 200810
